FAERS Safety Report 21190320 (Version 1)
Quarter: 2022Q3

REPORT INFORMATION
  Report Type: Spontaneous
  Country: CN (occurrence: CN)
  Receive Date: 20220809
  Receipt Date: 20220809
  Transmission Date: 20221026
  Serious: Yes (Hospitalization, Other)
  Sender: FDA-Public Use
  Company Number: None

PATIENT
  Age: 47 Year
  Sex: Male
  Weight: 76 kg

DRUGS (10)
  1. CYCLOPHOSPHAMIDE [Suspect]
     Active Substance: CYCLOPHOSPHAMIDE
     Indication: Peripheral T-cell lymphoma unspecified stage III
     Dosage: 1.4 G, ONCE DAILY,CYCLOPHOSPHAMIDE DILUTED WITH DILUENT 0.9% SODIUM CHLORIDE INJECTION
     Route: 041
     Dates: start: 20220616, end: 20220616
  2. SODIUM CHLORIDE [Suspect]
     Active Substance: SODIUM CHLORIDE
     Indication: Medication dilution
     Dosage: 500 ML, ONCE DAILY, DILUTED WITH CYCLOPHOSPHAMIDE
     Route: 041
     Dates: start: 20220616, end: 20220616
  3. SODIUM CHLORIDE [Suspect]
     Active Substance: SODIUM CHLORIDE
     Dosage: 250 ML, ONCE DAILY, DILUTED WITH DOXORUBICIN HYDROCHLORIDE
     Route: 041
     Dates: start: 20220616, end: 20220616
  4. SODIUM CHLORIDE [Suspect]
     Active Substance: SODIUM CHLORIDE
     Dosage: 100 ML, ONCE DAILY DILUTED WITH  VINCRISTINE SULFATE
     Route: 041
     Dates: start: 20220616, end: 20220616
  5. SODIUM CHLORIDE [Suspect]
     Active Substance: SODIUM CHLORIDE
     Dosage: 500 ML, ONCE DAILY DILUTED WITH ETOPOSIDE
     Route: 041
     Dates: start: 20220616, end: 20220618
  6. SODIUM CHLORIDE [Suspect]
     Active Substance: SODIUM CHLORIDE
     Dosage: 500 ML, DILUTED WITH ETOPOSIDE
     Route: 041
     Dates: start: 20220616, end: 20220618
  7. DOXORUBICIN HYDROCHLORIDE [Suspect]
     Active Substance: DOXORUBICIN HYDROCHLORIDE
     Indication: Peripheral T-cell lymphoma unspecified stage III
     Dosage: POWDER, 90 MG, ONCE DAILY, DOXORUBICIN HYDROCHLORIDE DILUTED WITH 0.9% SODIUM CHLORIDE INJECTION
     Route: 041
     Dates: start: 20220616, end: 20220616
  8. VINCRISTINE SULFATE [Suspect]
     Active Substance: VINCRISTINE SULFATE
     Indication: Peripheral T-cell lymphoma unspecified stage III
     Dosage: (LYOPHILIZED POWDER), 2 MG, ONCE DAILY, VINCRISTINE SULFATE DILUTED WITH  0.9% SODIUM CHLORIDE INJEC
     Route: 041
     Dates: start: 20220616, end: 20220616
  9. ETOPOSIDE [Suspect]
     Active Substance: ETOPOSIDE
     Indication: Peripheral T-cell lymphoma unspecified stage III
     Dosage: 0.1 G, ONCE DAILY ETOPOSIDE DILUTED WITH 0.9% SODIUM CHLORIDE INJECTION
     Route: 041
     Dates: start: 20220616, end: 20220618
  10. ETOPOSIDE [Suspect]
     Active Substance: ETOPOSIDE
     Dosage: 0.09 G, ONCE DAILY, ETOPOSIDE DILUTED WITH 0.9% SODIUM CHLORIDE INJECTION
     Route: 041
     Dates: start: 20220616, end: 20220618

REACTIONS (3)
  - Jaundice [Recovering/Resolving]
  - Hepatic enzyme increased [Recovering/Resolving]
  - Liver injury [Recovering/Resolving]

NARRATIVE: CASE EVENT DATE: 20220705
